FAERS Safety Report 14129363 (Version 2)
Quarter: 2017Q4

REPORT INFORMATION
  Report Type: Spontaneous
  Country: JP (occurrence: JP)
  Receive Date: 20171026
  Receipt Date: 20171114
  Transmission Date: 20180321
  Serious: Yes (Disabling)
  Sender: FDA-Public Use
  Company Number: JP-PFIZER INC-2017401365

PATIENT
  Age: 31 Year
  Sex: Female

DRUGS (5)
  1. GABAPEN [Suspect]
     Active Substance: GABAPENTIN
     Indication: PAIN
     Dosage: 400 MG, 3X/DAY
     Route: 048
     Dates: start: 2012, end: 201602
  2. TRAMAL [Suspect]
     Active Substance: TRAMADOL
     Indication: PAIN
     Dosage: 100 MG, 4X/DAY
     Route: 048
     Dates: start: 2012, end: 201602
  3. SENIRAN [Concomitant]
     Active Substance: BROMAZEPAM
  4. RIVOTRIL [Concomitant]
     Active Substance: CLONAZEPAM
  5. ROHYPNOL [Concomitant]
     Active Substance: FLUNITRAZEPAM

REACTIONS (3)
  - Myofascial pain syndrome [Recovered/Resolved]
  - Condition aggravated [Recovered/Resolved]
  - Delirium [Recovered/Resolved]
